FAERS Safety Report 10039749 (Version 1)
Quarter: 2014Q1

REPORT INFORMATION
  Report Type: Spontaneous
  Country: FR (occurrence: FR)
  Receive Date: 20140326
  Receipt Date: 20140326
  Transmission Date: 20141002
  Serious: Yes (Hospitalization, Other)
  Sender: FDA-Public Use
  Company Number: FR-PFIZER INC-2014082708

PATIENT
  Age: 87 Year
  Sex: Male

DRUGS (8)
  1. LYRICA [Suspect]
     Dosage: 150 MG, 2X/DAY
     Route: 048
  2. DAFALGAN CODEINE [Suspect]
     Indication: PAIN IN EXTREMITY
     Dosage: 6 DF, DAILY
     Route: 048
     Dates: start: 201310, end: 20131119
  3. TAHOR [Concomitant]
  4. PERINDOPRIL [Concomitant]
  5. HYPERIUM [Concomitant]
  6. KARDEGIC [Concomitant]
  7. LANSOYL [Concomitant]
  8. MECIR [Concomitant]

REACTIONS (6)
  - Urinary retention [Recovered/Resolved]
  - Rectal haemorrhage [Unknown]
  - Renal mass [Unknown]
  - Pelvic pain [Unknown]
  - Haemorrhoids [Unknown]
  - Bladder disorder [Unknown]
